FAERS Safety Report 8118468-6 (Version None)
Quarter: 2012Q1

REPORT INFORMATION
  Report Type: 
  Country: None (occurrence: None)
  Receive Date: 20120207
  Receipt Date: 20120201
  Transmission Date: 20120608
  Serious: Yes (Other)
  Sender: FDA-Public Use
  Company Number: GB-SANOFI-AVENTIS-A01200701917

PATIENT
  Age: 68 Year
  Sex: Male
  Weight: 78 kg

DRUGS (11)
  1. BISOPROLOL FUMARATE [Suspect]
     Dosage: UNIT DOSE: 7.5 MG
     Route: 065
  2. LANSOPRAZOLE [Suspect]
     Dosage: UNIT DOSE: 30 MG
     Route: 065
  3. PERINDOPRIL ERBUMINE [Suspect]
     Dosage: UNIT DOSE: 2 MG
     Route: 065
  4. ASPIRIN [Suspect]
     Dosage: UNIT DOSE: 75 MG
     Route: 065
  5. WARFARIN SODIUM [Concomitant]
     Route: 065
  6. DIGOXIN [Suspect]
     Dosage: UNIT DOSE: .125 MG
     Route: 065
  7. ACIPIMOX [Suspect]
     Dosage: UNIT DOSE: 250 MG
     Route: 065
  8. EZETIMIBE [Suspect]
     Dosage: UNIT DOSE: 10 MG
     Route: 048
  9. FUROSEMIDE [Suspect]
     Route: 065
  10. AMIODARONE HYDROCHLORIDE [Suspect]
     Dosage: UNIT DOSE: 200 MG
     Route: 065
  11. FUROSEMIDE [Suspect]
     Dosage: UNIT DOSE: 80 MG
     Route: 065

REACTIONS (15)
  - VENTRICULAR TACHYCARDIA [None]
  - FATIGUE [None]
  - LEFT VENTRICULAR DYSFUNCTION [None]
  - OEDEMA [None]
  - DISSOCIATION [None]
  - DYSPNOEA [None]
  - DRUG INEFFECTIVE [None]
  - DYSPNOEA EXERTIONAL [None]
  - ATRIAL FIBRILLATION [None]
  - VENOUS PRESSURE JUGULAR [None]
  - CARDIAC MURMUR [None]
  - OEDEMA PERIPHERAL [None]
  - DIZZINESS [None]
  - PARAESTHESIA [None]
  - FEELING ABNORMAL [None]
